FAERS Safety Report 6050000-3 (Version None)
Quarter: 2009Q1

REPORT INFORMATION
  Report Type: 
  Country: None (occurrence: None)
  Receive Date: 20090121
  Receipt Date: 20090109
  Transmission Date: 20090719
  Serious: Yes (Hospitalization)
  Sender: FDA-Public Use
  Company Number: US025143

PATIENT
  Age: 71 Year
  Sex: Male
  Weight: 163.2949 kg

DRUGS (8)
  1. PROVIGIL [Suspect]
     Indication: SLEEP APNOEA SYNDROME
     Dosage: 100 MG QD ORAL
     Route: 048
     Dates: start: 20080918, end: 20080929
  2. ZETIA [Concomitant]
  3. LIPITOR [Concomitant]
  4. METFORMIN HCL [Concomitant]
  5. LOSARTAN POTASSIUM AND HYDROCHLOROTHIAZIDE [Concomitant]
  6. GLIMEPIRIDE [Concomitant]
  7. ASPIRIN [Concomitant]
  8. FUROSEMIDE [Concomitant]

REACTIONS (2)
  - ATRIAL FIBRILLATION [None]
  - ATRIAL FLUTTER [None]
